FAERS Safety Report 20575567 (Version 1)
Quarter: 2022Q1

REPORT INFORMATION
  Report Type: Spontaneous
  Country: US (occurrence: US)
  Receive Date: 20220310
  Receipt Date: 20220310
  Transmission Date: 20220424
  Serious: No
  Sender: FDA-Public Use
  Company Number: US-drreddys-SPO/USA/22/0147420

PATIENT
  Age: 15 Year
  Sex: Female

DRUGS (1)
  1. ZENATANE [Suspect]
     Active Substance: ISOTRETINOIN
     Indication: Product used for unknown indication
     Dosage: RMA ISSUE DATE: 19 NOVEMBER 2021 05:38:11 PM, 22 DECEMBER 2021 05:57:14 PM, 03 FEBRUARY 2022 09:20:3

REACTIONS (2)
  - Decreased activity [Unknown]
  - Arthralgia [Unknown]
